FAERS Safety Report 25661303 (Version 1)
Quarter: 2025Q3

REPORT INFORMATION
  Report Type: Spontaneous
  Country: US (occurrence: US)
  Receive Date: 20250808
  Receipt Date: 20250808
  Transmission Date: 20251020
  Serious: Yes (Hospitalization, Other)
  Sender: VERTEX
  Company Number: US-VERTEX PHARMACEUTICALS-2025-012792

PATIENT
  Age: 65 Year
  Sex: Male

DRUGS (5)
  1. JOURNAVX [Suspect]
     Active Substance: SUZETRIGINE
     Indication: Pain
     Dosage: 100 MG (PRE-OP DOSE), SINGLE
     Route: 048
     Dates: start: 20250624, end: 20250624
  2. ACETAMINOPHEN [Suspect]
     Active Substance: ACETAMINOPHEN
     Indication: Pain
     Dosage: 1000 MG, SINGLE (01 DOSE)
     Route: 065
     Dates: start: 20250624, end: 20250624
  3. ACETAMINOPHEN [Suspect]
     Active Substance: ACETAMINOPHEN
     Dosage: 500 MG, SINGLE (01 DOSE)
     Route: 065
     Dates: start: 20250624, end: 20250624
  4. FENTANYL [Suspect]
     Active Substance: FENTANYL
     Indication: Pain
     Route: 065
     Dates: start: 20250624, end: 20250624
  5. DILAUDID [Suspect]
     Active Substance: HYDROMORPHONE HYDROCHLORIDE
     Indication: Pain
     Route: 065
     Dates: start: 20250624

REACTIONS (3)
  - Pulmonary embolism [Unknown]
  - Syncope [Recovered/Resolved with Sequelae]
  - Muscle twitching [Unknown]

NARRATIVE: CASE EVENT DATE: 20250624
